FAERS Safety Report 23760754 (Version 1)
Quarter: 2024Q2

REPORT INFORMATION
  Report Type: Other
  Country: JP (occurrence: JP)
  Receive Date: 20240419
  Receipt Date: 20240419
  Transmission Date: 20240716
  Serious: Yes (Hospitalization)
  Sender: FDA-Public Use
  Company Number: JP-CHUGAI-2024009554AA

PATIENT
  Age: 73 Year
  Sex: Female

DRUGS (9)
  1. TECENTRIQ [Suspect]
     Active Substance: ATEZOLIZUMAB
     Indication: Lung adenocarcinoma
     Route: 042
  2. AFATINIB [Concomitant]
     Active Substance: AFATINIB
  3. OSIMERTINIB [Concomitant]
     Active Substance: OSIMERTINIB
  4. CARBOPLATIN [Concomitant]
     Active Substance: CARBOPLATIN
  5. PACLITAXEL [Concomitant]
     Active Substance: PACLITAXEL
  6. DOCETAXEL [Concomitant]
     Active Substance: DOCETAXEL\DOCETAXEL ANHYDROUS
  7. PEMETREXED [Concomitant]
     Active Substance: PEMETREXED
  8. GEFITINIB [Concomitant]
     Active Substance: GEFITINIB
  9. GIMERACIL\OTERACIL\TEGAFUR [Concomitant]
     Active Substance: GIMERACIL\OTERACIL POTASSIUM\TEGAFUR
     Route: 048

REACTIONS (2)
  - Disease progression [Unknown]
  - Coagulation factor inhibitor assay [Recovered/Resolved]
